FAERS Safety Report 6065763-0 (Version None)
Quarter: 2009Q1

REPORT INFORMATION
  Report Type: 
  Country: None (occurrence: None)
  Receive Date: 20090202
  Receipt Date: 20090128
  Transmission Date: 20090719
  Serious: Yes (Death)
  Sender: FDA-Public Use
  Company Number: 2009SP000679

PATIENT
  Age: 76 Year
  Sex: Male

DRUGS (6)
  1. TEMODAR [Suspect]
     Indication: GLIOBLASTOMA MULTIFORME
     Dosage: 150 MG;QD, 320 MG;QD, 320 MG;QD, 320 MG;QD
     Dates: start: 20080605, end: 20080717
  2. TEMODAR [Suspect]
     Indication: GLIOBLASTOMA MULTIFORME
     Dosage: 150 MG;QD, 320 MG;QD, 320 MG;QD, 320 MG;QD
     Dates: start: 20080918
  3. TEMODAR [Suspect]
     Indication: GLIOBLASTOMA MULTIFORME
     Dosage: 150 MG;QD, 320 MG;QD, 320 MG;QD, 320 MG;QD
     Dates: start: 20081104
  4. TEMODAR [Suspect]
     Indication: GLIOBLASTOMA MULTIFORME
     Dosage: 150 MG;QD, 320 MG;QD, 320 MG;QD, 320 MG;QD
     Dates: start: 20081218
  5. DECADRON [Concomitant]
  6. ZOFRAN [Concomitant]

REACTIONS (2)
  - DISEASE PROGRESSION [None]
  - NO THERAPEUTIC RESPONSE [None]
